FAERS Safety Report 6954852-1 (Version None)
Quarter: 2010Q3

REPORT INFORMATION
  Report Type: 
  Country: None (occurrence: None)
  Receive Date: 20100830
  Receipt Date: 20100823
  Transmission Date: 20110219
  Serious: Yes (Death)
  Sender: FDA-Public Use
  Company Number: US-CELGENEUS-163-21880-10062727

PATIENT
  Sex: Male

DRUGS (7)
  1. REVLIMID [Suspect]
     Route: 048
     Dates: start: 20100422, end: 20100515
  2. REVLIMID [Suspect]
     Indication: PANCYTOPENIA
  3. SIMVASTATIN [Concomitant]
     Route: 048
  4. LEVOTHYROXINE SODIUM [Concomitant]
     Indication: THYROID DISORDER
     Route: 048
  5. LANTUS [Concomitant]
     Dosage: 65 UNITS
     Route: 058
  6. HUMULIN R [Concomitant]
     Dosage: 5 UNITS
     Route: 058
  7. COREG [Concomitant]
     Route: 065

REACTIONS (2)
  - ACUTE LEUKAEMIA [None]
  - MYELODYSPLASTIC SYNDROME TRANSFORMATION [None]
